FAERS Safety Report 5159208-2 (Version None)
Quarter: 2006Q4

REPORT INFORMATION
  Report Type: 
  Country: None (occurrence: None)
  Receive Date: 20061120
  Receipt Date: 20061107
  Transmission Date: 20070319
  Serious: Yes (Death)
  Sender: FDA-Public Use
  Company Number: 230002L06DEU

PATIENT
  Sex: Female

DRUGS (1)
  1. REBIF [Suspect]
     Indication: RELAPSING-REMITTING MULTIPLE SCLEROSIS
     Dosage: 22 MCG. 3 IN  1 WEEKS,  SUBCUTANEOUS
     Route: 058
     Dates: start: 19980101

REACTIONS (8)
  - ACUTE MYELOID LEUKAEMIA [None]
  - ANAEMIA HAEMOLYTIC AUTOIMMUNE [None]
  - MYELODYSPLASTIC SYNDROME [None]
  - PANCYTOPENIA [None]
  - REFRACTORY ANAEMIA WITH AN EXCESS OF BLASTS [None]
  - SEPSIS [None]
  - STEM CELL TRANSPLANT [None]
  - SUBDURAL HAEMATOMA [None]
